FAERS Safety Report 6180340-9 (Version None)
Quarter: 2009Q2

REPORT INFORMATION
  Report Type: 
  Country: None (occurrence: None)
  Receive Date: 20090504
  Receipt Date: 20090504
  Transmission Date: 20091009
  Serious: Yes (Other)
  Sender: FDA-Public Use
  Company Number: None

PATIENT
  Age: 64 Year
  Sex: Male
  Weight: 78 kg

DRUGS (2)
  1. BUFFERIN (NCH) (ACETYLSALICYLIC ACID) [Suspect]
     Indication: ANGIOPATHY
     Dosage: HALF A TABLET A DAY, ORAL
     Route: 048
  2. MONOCORDIL (ISOSORBIDE MONONITRATE) [Concomitant]

REACTIONS (4)
  - ABDOMINAL PAIN UPPER [None]
  - GASTRITIS [None]
  - HELICOBACTER INFECTION [None]
  - ULCER [None]
